FAERS Safety Report 8472164-4 (Version None)
Quarter: 2012Q2

REPORT INFORMATION
  Report Type: 
  Country: None (occurrence: None)
  Receive Date: 20120323
  Receipt Date: 20111010
  Transmission Date: 20120825
  Serious: Yes (Hospitalization)
  Sender: FDA-Public Use
  Company Number: 163-21880-11082715

PATIENT
  Age: 76 Year
  Sex: Male

DRUGS (7)
  1. INDOMETHACIN [Concomitant]
  2. ATENOLOL [Concomitant]
  3. OMEPRAZOLE [Concomitant]
  4. FLOMAX (TAMSULOSIN)(UNKNOWN) [Concomitant]
  5. EXJADE (DEFERASIROX)(UNKNOWN) [Concomitant]
  6. REVLIMID [Suspect]
     Indication: MYELODYSPLASTIC SYNDROME
     Dosage: 10 MG, QD X 21 DAYS,  PO
     Route: 048
     Dates: start: 20110913
  7. REVLIMID [Suspect]
     Indication: MYELODYSPLASTIC SYNDROME
     Dosage: 10 MG, QD X 21 DAYS,  PO
     Route: 048
     Dates: start: 20110801

REACTIONS (3)
  - PNEUMONIA [None]
  - SEPSIS [None]
  - ASTHENIA [None]
